FAERS Safety Report 21194926 (Version 7)
Quarter: 2022Q3

REPORT INFORMATION
  Report Type: Spontaneous
  Country: RU (occurrence: RU)
  Receive Date: 20220810
  Receipt Date: 20220923
  Transmission Date: 20221027
  Serious: Yes (Death, Hospitalization)
  Sender: FDA-Public Use
  Company Number: RU-NOVARTISPH-NVSC2022RU180245

PATIENT
  Sex: Male
  Weight: 6 kg

DRUGS (13)
  1. ZOLGENSMA [Suspect]
     Active Substance: ONASEMNOGENE ABEPARVOVEC-XIOI
     Indication: Spinal muscular atrophy
     Dosage: 35.8 ML, ONCE/SINGLE (WITHIN 1 HR)
     Route: 041
     Dates: start: 20220526, end: 20220526
  2. ZOLGENSMA [Suspect]
     Active Substance: ONASEMNOGENE ABEPARVOVEC-XIOI
     Dosage: 35.8 ML, ONCE/SINGLE (WITHIN 1 HR)
     Route: 041
     Dates: start: 20220526, end: 20220526
  3. PYRIDOXINE;THIAMINE;VITAMIN B12 NOS [Concomitant]
     Indication: Product used for unknown indication
     Dosage: 0.5 ML (ONCE EVERY 3 DAYS)
     Route: 030
     Dates: start: 20220519, end: 20220601
  4. LEVOCARNITINE [Concomitant]
     Active Substance: LEVOCARNITINE
     Indication: Product used for unknown indication
     Dosage: 0.25 ML, BID
     Route: 065
     Dates: start: 20220519, end: 20220601
  5. PREDNISOLONE [Concomitant]
     Active Substance: PREDNISOLONE
     Indication: Product used for unknown indication
     Dosage: 5 MG, BID (7:00 5 MG, 10:00 2.5 MG)
     Route: 065
     Dates: start: 20220525, end: 20220601
  6. ASPARCAM [Concomitant]
     Indication: Product used for unknown indication
     Dosage: 1/6 TABLET, BID (MORNING, EVENING)
     Route: 065
     Dates: start: 20220525, end: 20220601
  7. NEXIUM [Concomitant]
     Active Substance: ESOMEPRAZOLE MAGNESIUM
     Indication: Product used for unknown indication
     Dosage: 0.5 DOSAGE FORM (AT 6:30)
     Route: 065
     Dates: start: 20220525, end: 20220601
  8. BIFIDOBACTERIUM BIFIDUM [Concomitant]
     Active Substance: BIFIDOBACTERIUM BIFIDUM
     Indication: Product used for unknown indication
     Dosage: 5 DOSAGE FORM, QD (BEFORE MEAL FOR 14 DAYS)
     Route: 065
  9. METHYLPREDNISOLONE [Concomitant]
     Active Substance: METHYLPREDNISOLONE
     Indication: Hormone therapy
     Dosage: 1 MG/KG, QD
     Route: 065
  10. BLOOD, BOVINE [Concomitant]
     Active Substance: BLOOD, BOVINE
     Indication: Product used for unknown indication
     Dosage: 1/4 TAB , BID FOR 1 MONTH
     Route: 065
  11. ENTEROSGEL [Concomitant]
     Indication: Product used for unknown indication
     Dosage: UNK, TID ( 0.5 TEASPOON IN A TRIPLE VOLUME OF WATER, BEFORE FEEDING 3 TIMES A DAY FOR 5 DAYS)
     Route: 065
  12. DIMETHINDENE [Concomitant]
     Active Substance: DIMETHINDENE
     Indication: Product used for unknown indication
     Dosage: 5 DRP, TID (FOR 10 DAYS)
     Route: 065
  13. KOMFODERM K [Concomitant]
     Indication: Product used for unknown indication
     Dosage: UNK (ON LESIONS 2 TIMES A DAY FOR 3 DAYS, THEN ONCE PER DAY FOR 5 DAYS, THEN ELIDEL ONCE PER DAY  FO
     Route: 065

REACTIONS (8)
  - Emphysema [Fatal]
  - Respiratory failure [Fatal]
  - Pneumonia aspiration [Fatal]
  - Hypotension [Unknown]
  - Skin haemorrhage [Unknown]
  - Dyskinesia [Unknown]
  - Asthenia [Unknown]
  - Hypotonia [Unknown]
